FAERS Safety Report 7138340-8 (Version None)
Quarter: 2010Q4

REPORT INFORMATION
  Report Type: 
  Country: None (occurrence: None)
  Receive Date: 20101206
  Receipt Date: 20101124
  Transmission Date: 20110411
  Serious: Yes (Hospitalization)
  Sender: FDA-Public Use
  Company Number: US-ROCHE-745794

PATIENT
  Sex: Female

DRUGS (6)
  1. BEVACIZUMAB [Suspect]
     Indication: BREAST CANCER
     Route: 065
     Dates: start: 20100524
  2. PEGFILGRASTIM [Suspect]
     Indication: BREAST CANCER
     Route: 058
     Dates: start: 20101110, end: 20101110
  3. DOXORUBICINE [Suspect]
     Indication: BREAST CANCER
     Route: 065
     Dates: start: 20101108
  4. CYCLOPHOSPHAMIDE [Suspect]
     Indication: BREAST CANCER
     Route: 065
     Dates: start: 20101108
  5. PACLITAXEL [Suspect]
     Indication: BREAST CANCER
     Route: 065
     Dates: start: 20100510
  6. CYCLOPLATIN [Suspect]
     Indication: BREAST CANCER
     Route: 065
     Dates: start: 20100524

REACTIONS (4)
  - HYPERSENSITIVITY [None]
  - NEUTROPENIA [None]
  - ODYNOPHAGIA [None]
  - ORAL CANDIDIASIS [None]
